FAERS Safety Report 9471637 (Version 1)
Quarter: 2013Q3

REPORT INFORMATION
  Report Type: Spontaneous
  Country: AU (occurrence: None)
  Receive Date: 20130819
  Receipt Date: 20130819
  Transmission Date: 20140515
  Serious: Yes (Hospitalization)
  Sender: FDA-Public Use
  Company Number: 2013000202

PATIENT
  Age: 69 Year
  Sex: Male

DRUGS (13)
  1. ACEON [Suspect]
     Indication: HYPERTENSION
     Route: 048
     Dates: start: 2003, end: 20130805
  2. ACLASTA (ZOLEDRONIC ACID) INFUSION [Concomitant]
  3. NOTEN (ATENOLOL) [Concomitant]
  4. ETANERCEPT (ETANERCEPT) [Concomitant]
  5. METHOTREXATE [Concomitant]
  6. LYRICA (PREGABALIN) [Concomitant]
  7. DIGESIC (DEXTROPROPOXYPHENE HCL W/PARACETAMOL) [Concomitant]
  8. ESOMEPRAZOLE [Concomitant]
  9. FOLIC ACID [Concomitant]
  10. OSTEVIT-D (COLECALCIFEROL) [Concomitant]
  11. BIOZINC (ZINC) [Concomitant]
  12. FISH OIL (FISH OIL) [Concomitant]
  13. GARLIC/HORSERADISH (GARLIC) [Concomitant]

REACTIONS (3)
  - Knee operation [None]
  - Somnolence [None]
  - Blood pressure inadequately controlled [None]
